FAERS Safety Report 9153505 (Version 1)
Quarter: 2013Q1

REPORT INFORMATION
  Report Type: Spontaneous
  Country: US (occurrence: None)
  Receive Date: 20130204
  Receipt Date: 20130204
  Transmission Date: 20140127
  Serious: Yes (Other)
  Sender: FDA-Public Use
  Company Number: IPC201212-000639

PATIENT
  Age: 72 Year
  Sex: Female
  Weight: 64.41 kg

DRUGS (5)
  1. HYDROXYCHLOROQUINE SULFATE [Suspect]
     Indication: SARCOIDOSIS
     Dosage: 1 AND 1/2 TABLET FIRST PART OF MONTH. THEN 1/2 TABLET IN MID OF THE MONTH
     Dates: start: 201209, end: 201209
  2. RANITIDINE [Concomitant]
  3. ESTROGEN [Concomitant]
  4. TRAMADOL [Concomitant]
  5. REGLAN [Concomitant]

REACTIONS (7)
  - Joint dislocation [None]
  - Weight decreased [None]
  - Epigastric discomfort [None]
  - Malaise [None]
  - Abdominal discomfort [None]
  - Flatulence [None]
  - Eye infection [None]
